FAERS Safety Report 22590553 (Version 2)
Quarter: 2023Q2

REPORT INFORMATION
  Report Type: Report from Study
  Country: NL (occurrence: None)
  Receive Date: 20230612
  Receipt Date: 20230620
  Transmission Date: 20230721
  Serious: Yes (Hospitalization)
  Sender: FDA-Public Use
  Company Number: NL-ROCHE-3363466

PATIENT
  Age: 71 Year
  Sex: Female
  Weight: 51.1 kg

DRUGS (3)
  1. INVESTIGATIONAL PRODUCT [Suspect]
     Active Substance: INVESTIGATIONAL PRODUCT
     Indication: Breast cancer metastatic
     Dosage: 06/DEC/2022 12:12 PM, RECEIVED THE MOST RECENT DOSE(1.5 MG) OF STUDY DRUG(RO7284755) PRIOR TO AE/SAE
     Route: 042
     Dates: start: 20220407
  2. ATEZOLIZUMAB [Suspect]
     Active Substance: ATEZOLIZUMAB
     Indication: Breast cancer metastatic
     Dosage: ON 02/DEC/2022 2:14 PM TO 02:52PM, RECEIVED THE MOST RECENT DOSE (1200MG) OF ATEZOLIZUMAB) PRIOR TO
     Route: 041
     Dates: start: 20220407
  3. PREDNISOLONE [Concomitant]
     Active Substance: PREDNISOLONE
     Indication: Alanine aminotransferase increased
     Route: 048
     Dates: start: 20230322

REACTIONS (1)
  - Seizure [Recovering/Resolving]

NARRATIVE: CASE EVENT DATE: 20230603
